FAERS Safety Report 7466845-9 (Version None)
Quarter: 2011Q2

REPORT INFORMATION
  Report Type: 
  Country: None (occurrence: None)
  Receive Date: 20110509
  Receipt Date: 20100909
  Transmission Date: 20111010
  Serious: Yes (Hospitalization)
  Sender: FDA-Public Use
  Company Number: US-ALEXION-A201001086

PATIENT
  Sex: Female

DRUGS (5)
  1. SOLIRIS [Suspect]
     Dosage: 900 MG, Q2W
     Route: 042
     Dates: start: 20100101
  2. TYLENOL (CAPLET) [Concomitant]
     Indication: PREMEDICATION
     Dosage: 650 UNK, SINGLE
     Route: 048
     Dates: start: 20100604
  3. NORMAL SALINE [Concomitant]
     Dosage: 250 ML, UNK
     Route: 042
     Dates: start: 20100604
  4. SOLIRIS [Suspect]
     Indication: PAROXYSMAL NOCTURNAL HAEMOGLOBINURIA
     Dosage: UNK
     Route: 042
  5. BENADRYL [Concomitant]
     Indication: PREMEDICATION
     Dosage: 25 MG, SINGLE
     Route: 048
     Dates: start: 20100604

REACTIONS (9)
  - MUSCULOSKELETAL PAIN [None]
  - VOMITING [None]
  - PARAESTHESIA [None]
  - BACK PAIN [None]
  - DIZZINESS [None]
  - ABDOMINAL PAIN [None]
  - PYREXIA [None]
  - NAUSEA [None]
  - CHEST PAIN [None]
